FAERS Safety Report 4703232-8 (Version None)
Quarter: 2005Q2

REPORT INFORMATION
  Report Type: 
  Country: None (occurrence: None)
  Receive Date: 20050628
  Receipt Date: 20050610
  Transmission Date: 20051028
  Serious: Yes (Hospitalization)
  Sender: FDA-Public Use
  Company Number: DSA_26638_2005

PATIENT
  Age: 89 Year
  Sex: Male

DRUGS (5)
  1. ENALAPRIL MALEATE [Suspect]
     Dosage: 5 MG QD PO
     Route: 048
     Dates: end: 20050429
  2. DILATREND [Suspect]
     Dosage: 6.25 MG BID PO
     Route: 048
     Dates: end: 20050429
  3. PLAVIX [Concomitant]
  4. FOLIC ACID [Concomitant]
  5. OXAZEPAM [Concomitant]

REACTIONS (3)
  - BLOOD PRESSURE DIASTOLIC DECREASED [None]
  - SUPRAVENTRICULAR EXTRASYSTOLES [None]
  - SYNCOPE [None]
